FAERS Safety Report 9129353 (Version 2)
Quarter: 2013Q4

REPORT INFORMATION
  Report Type: Spontaneous
  Country: US (occurrence: US)
  Receive Date: 20130228
  Receipt Date: 20131106
  Transmission Date: 20140711
  Serious: Yes (Other)
  Sender: FDA-Public Use
  Company Number: US-ROCHE-GNE301907

PATIENT
  Age: 59 Year
  Sex: Female
  Weight: 69.92 kg

DRUGS (7)
  1. XOLAIR [Suspect]
     Indication: ASTHMA
     Dosage: 150 MG, Q4W
     Route: 030
     Dates: start: 20100326, end: 20100326
  2. ADVAIR [Concomitant]
     Indication: ASTHMA
     Dosage: 500/50 MCG
     Route: 050
  3. DUONEB [Concomitant]
     Indication: ASTHMA
     Route: 050
  4. SINGULAIR [Concomitant]
     Indication: ASTHMA
     Route: 048
  5. OMEGA-3 [Concomitant]
     Indication: PROPHYLAXIS
     Route: 048
  6. IVIG [Concomitant]
     Indication: SELECTIVE IGG SUBCLASS DEFICIENCY
     Route: 042
     Dates: start: 2010
  7. NORCO [Concomitant]
     Indication: PAIN
     Route: 048

REACTIONS (1)
  - Anaphylactic reaction [Recovered/Resolved]
